FAERS Safety Report 4556784-5 (Version None)
Quarter: 2005Q1

REPORT INFORMATION
  Report Type: 
  Country: None (occurrence: None)
  Receive Date: 20050120
  Receipt Date: 20050111
  Transmission Date: 20050727
  Serious: Yes (Disabling)
  Sender: FDA-Public Use
  Company Number: US-ROCHE-391919

PATIENT
  Age: 50 Year
  Sex: Male

DRUGS (2)
  1. PEG-INTERFERON ALFA 2A (RO 25-8310) [Suspect]
     Route: 058
     Dates: start: 20041012, end: 20041214
  2. RIBAVIRIN [Suspect]
     Route: 048
     Dates: start: 20041012, end: 20041214

REACTIONS (4)
  - DUODENITIS [None]
  - GASTROINTESTINAL INFLAMMATION [None]
  - INFLAMMATION [None]
  - WEIGHT DECREASED [None]
